FAERS Safety Report 8699362 (Version 3)
Quarter: 2013Q1

REPORT INFORMATION
  Report Type: Spontaneous
  Country: US (occurrence: US)
  Receive Date: 20120802
  Receipt Date: 20130103
  Transmission Date: 20140127
  Serious: No
  Sender: FDA-Public Use
  Company Number: US-ASTRAZENECA-2012SE51548

PATIENT
  Age: 67 Year
  Sex: Male

DRUGS (2)
  1. SYMBICORT PMDI [Suspect]
     Route: 055
  2. NEXIUM [Suspect]
     Route: 048

REACTIONS (6)
  - Asthma [Unknown]
  - Dyspnoea [Unknown]
  - Diabetes mellitus [Unknown]
  - Visual impairment [Unknown]
  - Dysphonia [Unknown]
  - Malaise [Unknown]
